FAERS Safety Report 4464571-1 (Version None)
Quarter: 2004Q3

REPORT INFORMATION
  Report Type: 
  Country: None (occurrence: None)
  Receive Date: 20040929
  Receipt Date: 20040915
  Transmission Date: 20050211
  Serious: Yes (Hospitalization)
  Sender: FDA-Public Use
  Company Number: 2004-CN-00330CN

PATIENT
  Age: 65 Year
  Sex: Male

DRUGS (1)
  1. FLOMAX [Suspect]
     Dosage: NR (0.4 MG), PO
     Route: 048

REACTIONS (2)
  - ANOREXIA [None]
  - HEPATIC ENZYME INCREASED [None]
